FAERS Safety Report 25179193 (Version 3)
Quarter: 2025Q2

REPORT INFORMATION
  Report Type: Spontaneous
  Country: US (occurrence: US)
  Receive Date: 20250409
  Receipt Date: 20250613
  Transmission Date: 20250717
  Serious: Yes (Other)
  Sender: NOVARTIS
  Company Number: US-INCYTE CORPORATION-2025IN003653

PATIENT
  Age: 12 Year
  Sex: Female

DRUGS (30)
  1. JAKAFI [Suspect]
     Active Substance: RUXOLITINIB
     Indication: Interstitial lung disease
     Route: 065
     Dates: start: 202403
  2. JAKAFI [Suspect]
     Active Substance: RUXOLITINIB
     Indication: Autoinflammatory disease
     Route: 065
     Dates: start: 202405
  3. JAKAFI [Suspect]
     Active Substance: RUXOLITINIB
     Indication: Haemophagocytic lymphohistiocytosis
     Dosage: 25 MG, BID
     Route: 048
     Dates: start: 202411
  4. JAKAFI [Suspect]
     Active Substance: RUXOLITINIB
     Indication: Still^s disease
     Dosage: 25 MG, BID
     Route: 048
     Dates: start: 202411
  5. JAKAFI [Suspect]
     Active Substance: RUXOLITINIB
     Indication: Product used for unknown indication
     Route: 065
  6. CANAKINUMAB [Suspect]
     Active Substance: CANAKINUMAB
     Indication: Autoinflammatory disease
     Route: 065
     Dates: end: 202410
  7. CANAKINUMAB [Suspect]
     Active Substance: CANAKINUMAB
     Indication: Interstitial lung disease
     Route: 065
     Dates: start: 202305
  8. CANAKINUMAB [Suspect]
     Active Substance: CANAKINUMAB
     Indication: Still^s disease
     Route: 065
     Dates: start: 202311
  9. CANAKINUMAB [Suspect]
     Active Substance: CANAKINUMAB
     Indication: Haemophagocytic lymphohistiocytosis
     Route: 065
     Dates: start: 202410
  10. CANAKINUMAB [Suspect]
     Active Substance: CANAKINUMAB
     Dosage: 10 MG/KG, BIW
     Route: 065
  11. ACTEMRA [Concomitant]
     Active Substance: TOCILIZUMAB
     Indication: Autoinflammatory disease
     Dosage: UNK, QW (WEEKLY)
     Route: 058
     Dates: start: 202311, end: 202405
  12. ACTEMRA [Concomitant]
     Active Substance: TOCILIZUMAB
     Indication: Interstitial lung disease
     Route: 042
     Dates: start: 202409
  13. ACTEMRA [Concomitant]
     Active Substance: TOCILIZUMAB
     Indication: Still^s disease
  14. ACTEMRA [Concomitant]
     Active Substance: TOCILIZUMAB
     Indication: Haemophagocytic lymphohistiocytosis
  15. ANAKINRA [Concomitant]
     Active Substance: ANAKINRA
     Indication: Autoinflammatory disease
     Dosage: 100 MG, QD
     Route: 065
     Dates: start: 202405
  16. ANAKINRA [Concomitant]
     Active Substance: ANAKINRA
     Indication: Interstitial lung disease
  17. ANAKINRA [Concomitant]
     Active Substance: ANAKINRA
     Indication: Still^s disease
  18. ANAKINRA [Concomitant]
     Active Substance: ANAKINRA
     Indication: Haemophagocytic lymphohistiocytosis
  19. CELLCEPT [Concomitant]
     Active Substance: MYCOPHENOLATE MOFETIL
     Indication: Autoinflammatory disease
     Route: 065
     Dates: start: 202501
  20. CELLCEPT [Concomitant]
     Active Substance: MYCOPHENOLATE MOFETIL
     Indication: Interstitial lung disease
     Dosage: 250 MILLIGRAM, QD (EVERY MORNING)
     Route: 048
  21. CELLCEPT [Concomitant]
     Active Substance: MYCOPHENOLATE MOFETIL
     Indication: Still^s disease
     Dosage: 1 DOSAGE FORM, BID (1 TABLET (500 MG TOTAL) EVERY MORNING AND 2 TABLETS (1,000 MG TOTAL) NIGHTLY AT
     Route: 048
  22. CELLCEPT [Concomitant]
     Active Substance: MYCOPHENOLATE MOFETIL
     Indication: Haemophagocytic lymphohistiocytosis
  23. PRILOSEC [Concomitant]
     Active Substance: OMEPRAZOLE MAGNESIUM
     Indication: Product used for unknown indication
     Route: 065
  24. PRILOSEC [Concomitant]
     Active Substance: OMEPRAZOLE MAGNESIUM
     Dosage: 20 MG, QD
     Route: 048
     Dates: start: 20250113
  25. ZYRTEC [Concomitant]
     Active Substance: CETIRIZINE HYDROCHLORIDE
     Indication: Product used for unknown indication
     Dosage: 10 MILLIGRAM, QD
     Route: 048
  26. CHOLECALCIFEROL [Concomitant]
     Active Substance: CHOLECALCIFEROL
     Indication: Product used for unknown indication
     Route: 048
  27. BENADRYL ALLERGY [Concomitant]
     Active Substance: DIPHENHYDRAMINE HYDROCHLORIDE
     Indication: Product used for unknown indication
     Dosage: 10 MILLILITER, Q8H (25 MG TOTAL)
     Route: 048
  28. VITAMIN D2 [Concomitant]
     Active Substance: ERGOCALCIFEROL
     Indication: Product used for unknown indication
     Route: 048
  29. METHYLPHENIDATE HYDROCHLORIDE [Concomitant]
     Active Substance: METHYLPHENIDATE HYDROCHLORIDE
     Indication: Product used for unknown indication
     Dosage: 36 MILLIGRAM, QD (EVERY MORNING) TABLET, EXTENDED RELEASE
     Route: 048
  30. PROTOPIC [Concomitant]
     Active Substance: TACROLIMUS
     Indication: Product used for unknown indication
     Dosage: 0.1 %, BID
     Route: 065

REACTIONS (22)
  - Haemophagocytic lymphohistiocytosis [Unknown]
  - Interstitial lung disease [Unknown]
  - Still^s disease [Unknown]
  - Pneumonia [Unknown]
  - Urticaria [Unknown]
  - Condition aggravated [Unknown]
  - Viral infection [Unknown]
  - Body temperature increased [Unknown]
  - Pain [Unknown]
  - Eczema [Unknown]
  - Wheezing [Unknown]
  - Dyspnoea [Unknown]
  - Dry skin [Unknown]
  - Activated partial thromboplastin time shortened [Unknown]
  - Blood albumin increased [Unknown]
  - Autoimmune disorder [Unknown]
  - Quality of life decreased [Unknown]
  - Lung diffusion test decreased [Unknown]
  - Drug intolerance [Unknown]
  - Product dose omission issue [Unknown]
  - Off label use [Unknown]
  - Therapy non-responder [Unknown]

NARRATIVE: CASE EVENT DATE: 20240501
